FAERS Safety Report 6431147-6 (Version None)
Quarter: 2009Q4

REPORT INFORMATION
  Report Type: 
  Country: None (occurrence: None)
  Receive Date: 20091103
  Receipt Date: 20091019
  Transmission Date: 20100525
  Serious: No
  Sender: FDA-Public Use
  Company Number: 002606

PATIENT
  Age: 79 Year
  Sex: Male
  Weight: 49.7 kg

DRUGS (10)
  1. PLETAL [Suspect]
     Indication: CEREBRAL INFARCTION
     Dosage: 81 MG, BID, ORAL
     Route: 048
     Dates: start: 20050509, end: 20080709
  2. SENNOSIDE (SENNOSIDE) TABLET [Concomitant]
  3. LIVALO (PITAVASTATIN CALCIUM) TABLET [Concomitant]
  4. BROTIZOLAM (BROTIZOLAM) TABLET [Concomitant]
  5. MERISLON (BETAHISTINE MESILATE) TABLET [Concomitant]
  6. TECHNIS (IFENPRODIL TARTRATE) TABLET [Concomitant]
  7. ENALAPRIL MALEATE [Concomitant]
  8. HARNAL D (TAMSULOSIN HYDROCHLORIDE) TABLET [Concomitant]
  9. NIFLAN (PRANOPROFEN) OPTHALMIC SOLUTION [Concomitant]
  10. RINDERON-VG (BETAMETHASONE VALERATE _GENTAMICIN) OINTMENT, CREAM [Concomitant]

REACTIONS (3)
  - CEREBRAL INFARCTION [None]
  - DISEASE RECURRENCE [None]
  - DRUG INEFFECTIVE [None]
